FAERS Safety Report 15808399 (Version 1)
Quarter: 2019Q1

REPORT INFORMATION
  Report Type: Spontaneous
  Country: KR (occurrence: KR)
  Receive Date: 20190110
  Receipt Date: 20190110
  Transmission Date: 20190417
  Serious: Yes (Life-Threatening, Other)
  Sender: FDA-Public Use
  Company Number: KR-PFIZER INC-2018523066

PATIENT
  Age: 48 Year
  Sex: Female
  Weight: 57 kg

DRUGS (11)
  1. EPINEPHRINE. [Concomitant]
     Active Substance: EPINEPHRINE
     Indication: HYPOTENSION
     Dosage: 300 UG, UNK
     Route: 042
  2. EPINEPHRINE. [Concomitant]
     Active Substance: EPINEPHRINE
     Dosage: UNK (INFUSION 0.05 ?G/KG/MIN)
  3. ROCURONIUM BROMIDE. [Concomitant]
     Active Substance: ROCURONIUM BROMIDE
     Indication: INDUCTION OF ANAESTHESIA
     Dosage: 40 MG, UNK
     Route: 042
  4. DEXAMETHASONE. [Concomitant]
     Active Substance: DEXAMETHASONE
     Dosage: 5 MG, UNK
     Route: 042
  5. THROMBIN-JMI [Suspect]
     Active Substance: THROMBIN
     Dosage: UNK
     Route: 061
  6. PROPOFOL. [Concomitant]
     Active Substance: PROPOFOL
     Indication: INDUCTION OF ANAESTHESIA
     Dosage: UNK(1% PROPOFOL 90 MG)
     Route: 042
  7. SALBUTAMOL SULFATE [Concomitant]
     Active Substance: ALBUTEROL SULFATE
     Dosage: UNK
  8. CORTICAP [Concomitant]
     Dosage: 250 MG, UNK
  9. REMIFENTANIL [Concomitant]
     Active Substance: REMIFENTANIL
     Indication: ANAESTHESIA
     Dosage: UNK (INFUSION UNDER VOLUME-CONTROLLED VENTILATION)
  10. DESFLURANE. [Concomitant]
     Active Substance: DESFLURANE
     Indication: ANAESTHESIA
     Dosage: UNK(WITH 50% O2)
  11. PHENYLAMINE [Concomitant]
     Indication: HYPOTENSION
     Dosage: 4 MG, UNK
     Route: 042

REACTIONS (1)
  - Anaphylactic reaction [Unknown]
